FAERS Safety Report 23506842 (Version 1)
Quarter: 2024Q1

REPORT INFORMATION
  Report Type: Spontaneous
  Country: CA (occurrence: CA)
  Receive Date: 20240209
  Receipt Date: 20240209
  Transmission Date: 20240409
  Serious: Yes (Other)
  Sender: FDA-Public Use
  Company Number: CA-FreseniusKabi-FK202402045

PATIENT
  Age: 58 Year
  Sex: Female

DRUGS (14)
  1. MORPHINE SULFATE [Suspect]
     Active Substance: MORPHINE SULFATE
     Indication: Product used for unknown indication
     Dosage: FORM OF ADMIN.- NOT SPECIFIED
  2. MORPHINE SULFATE [Suspect]
     Active Substance: MORPHINE SULFATE
     Dosage: FORM OF ADMIN.- NOT SPECIFIED?MORPHINE
  3. MOXIFLOXACIN [Suspect]
     Active Substance: MOXIFLOXACIN
     Indication: Product used for unknown indication
     Dosage: FORM OF ADMIN.- NOT SPECIFIED
  4. MOXIFLOXACIN [Suspect]
     Active Substance: MOXIFLOXACIN
     Dosage: MOXIFLOXACIN HYDROCHLORIDE
  5. RITUXIMAB [Suspect]
     Active Substance: RITUXIMAB
     Indication: Product used for unknown indication
     Dosage: ROUTE OF ADMIN.- INTRAVENOUS (NOT OTHERWISE SPECIFIED) ( INT ) ?FORM OF ADMIN.- SOLUTION FOR INFUSIO
  6. RITUXIMAB [Suspect]
     Active Substance: RITUXIMAB
     Dosage: ROUTE OF ADMIN.- INTRAVENOUS (NOT OTHERWISE SPECIFIED) ( INT )
  7. RITUXIMAB [Suspect]
     Active Substance: RITUXIMAB
  8. LYRICA [Suspect]
     Active Substance: PREGABALIN
     Indication: Pain
     Dosage: ROUTE OF ADMIN.- ORAL?FORM OF ADMIN.- CAPSULES
  9. LYRICA [Suspect]
     Active Substance: PREGABALIN
     Indication: Herpes zoster
  10. HUMIRA [Suspect]
     Active Substance: ADALIMUMAB
     Indication: Product used for unknown indication
     Dosage: FORM OF ADMIN.- SOLUTION SUBCUTANEOUS
  11. HUMIRA [Suspect]
     Active Substance: ADALIMUMAB
     Dosage: ROUTE OF ADMIN.- SUBCUTANEOUS ( SC )
  12. ENBREL [Suspect]
     Active Substance: ETANERCEPT
     Indication: Rheumatoid arthritis
  13. CODEINE [Suspect]
     Active Substance: CODEINE
     Indication: Product used for unknown indication
  14. DEMEROL [Suspect]
     Active Substance: MEPERIDINE HYDROCHLORIDE
     Indication: Product used for unknown indication
     Dosage: FORM OF ADMIN.- NOT SPECIFIED

REACTIONS (10)
  - Hypertension [Unknown]
  - Drug hypersensitivity [Unknown]
  - Drug ineffective [Unknown]
  - Drug intolerance [Unknown]
  - Psoriasis [Unknown]
  - Pyrexia [Unknown]
  - Rash [Unknown]
  - Thrombocytopenia [Unknown]
  - Treatment failure [Unknown]
  - Upper respiratory tract infection [Unknown]
